FAERS Safety Report 9452197 (Version 1)
Quarter: 2013Q3

REPORT INFORMATION
  Report Type: Spontaneous
  Country: US (occurrence: US)
  Receive Date: 20130812
  Receipt Date: 20130812
  Transmission Date: 20140515
  Serious: No
  Sender: FDA-Public Use
  Company Number: US-009507513-1307USA013141

PATIENT
  Sex: Male

DRUGS (1)
  1. COZAAR [Suspect]
     Dosage: UNK
     Route: 048
     Dates: start: 201211

REACTIONS (2)
  - Heart rate irregular [Unknown]
  - Wrong technique in drug usage process [Unknown]
